FAERS Safety Report 8591671-7 (Version None)
Quarter: 2012Q3

REPORT INFORMATION
  Report Type: 
  Country: None (occurrence: None)
  Receive Date: 20120814
  Receipt Date: 20120802
  Transmission Date: 20120928
  Serious: Yes (Hospitalization, Other)
  Sender: FDA-Public Use
  Company Number: US-BAYER-2012-062454

PATIENT
  Age: 31 Year
  Sex: Female
  Weight: 80.726 kg

DRUGS (6)
  1. LEXAPRO [Concomitant]
     Indication: PANIC DISORDER
     Dosage: 10 MG, DAILY
     Route: 048
  2. TYLENOL PM [Concomitant]
     Route: 048
  3. DROSPIRENONE AND ETHINYL ESTRADIOL [Suspect]
     Dosage: UNK
     Dates: start: 20070410, end: 20100816
  4. XANAX [Concomitant]
     Dosage: 0.25 MG, TID
     Route: 048
  5. VICODIN [Concomitant]
  6. YASMIN [Suspect]
     Dosage: UNK
     Dates: start: 20070410, end: 20100816

REACTIONS (3)
  - INTRACRANIAL VENOUS SINUS THROMBOSIS [None]
  - INJURY [None]
  - CEREBROVASCULAR ACCIDENT [None]
